FAERS Safety Report 5937717-3 (Version None)
Quarter: 2008Q4

REPORT INFORMATION
  Report Type: 
  Country: None (occurrence: None)
  Receive Date: 20081031
  Receipt Date: 20081016
  Transmission Date: 20090506
  Serious: Yes (Death)
  Sender: FDA-Public Use
  Company Number: BE-GENENTECH-269555

PATIENT
  Sex: Male

DRUGS (8)
  1. MABTHERA [Suspect]
     Indication: NON-HODGKIN'S LYMPHOMA STAGE IV
     Dosage: 375 MG/M2, Q3W
     Route: 042
     Dates: start: 20080519
  2. CYCLOPHOSPHAMIDE [Concomitant]
     Indication: DRUG USE FOR UNKNOWN INDICATION
     Dosage: UNK
     Dates: start: 20080519, end: 20080904
  3. DOXORUBICIN HCL [Concomitant]
     Indication: DRUG USE FOR UNKNOWN INDICATION
     Dosage: UNK
     Dates: start: 20080519, end: 20080904
  4. VINCRISTINE [Concomitant]
     Indication: DRUG USE FOR UNKNOWN INDICATION
     Dosage: UNK
     Dates: start: 20080519, end: 20080904
  5. METHYLPREDNISOLONE 16MG TAB [Concomitant]
     Indication: ORGANISING PNEUMONIA
     Dosage: 125 MG, QD
     Dates: start: 20080910, end: 20080921
  6. ACYCLOVIR [Concomitant]
     Indication: ORGANISING PNEUMONIA
     Dosage: 1500 MG, QD
     Dates: start: 20080911, end: 20080921
  7. CEFEPIME [Concomitant]
     Indication: ORGANISING PNEUMONIA
     Dosage: 6000 MG, QD
     Dates: start: 20080911, end: 20081006
  8. AMIKACIN [Concomitant]
     Indication: ORGANISING PNEUMONIA
     Dosage: 1000 MG, QD
     Dates: end: 20081006

REACTIONS (2)
  - ORGANISING PNEUMONIA [None]
  - RESPIRATORY ARREST [None]
